FAERS Safety Report 11141639 (Version 5)
Quarter: 2015Q4

REPORT INFORMATION
  Report Type: Report from Study
  Country: US (occurrence: US)
  Receive Date: 20150527
  Receipt Date: 20151120
  Transmission Date: 20160304
  Serious: Yes (Hospitalization)
  Sender: FDA-Public Use
  Company Number: US-JNJFOC-20150518597

PATIENT
  Age: 93 Year
  Sex: Female

DRUGS (2)
  1. IMBRUVICA [Suspect]
     Active Substance: IBRUTINIB
     Indication: CHRONIC LYMPHOCYTIC LEUKAEMIA
     Route: 048
     Dates: start: 2015
  2. IMBRUVICA [Suspect]
     Active Substance: IBRUTINIB
     Indication: CHRONIC LYMPHOCYTIC LEUKAEMIA
     Route: 048
     Dates: start: 20140505

REACTIONS (8)
  - Dyspnoea [Recovered/Resolved]
  - Nasopharyngitis [Not Recovered/Not Resolved]
  - Chest discomfort [Recovered/Resolved]
  - Cough [Recovering/Resolving]
  - Dizziness [Not Recovered/Not Resolved]
  - Fall [Recovered/Resolved]
  - Arthralgia [Recovered/Resolved]
  - Respiratory tract congestion [Recovering/Resolving]

NARRATIVE: CASE EVENT DATE: 2015
